FAERS Safety Report 10157513 (Version 1)
Quarter: 2014Q2

REPORT INFORMATION
  Report Type: Spontaneous
  Country: US (occurrence: US)
  Receive Date: 20140507
  Receipt Date: 20140507
  Transmission Date: 20141212
  Serious: Yes (Other)
  Sender: FDA-Public Use
  Company Number: PHHY2014US054171

PATIENT
  Age: 65 Year
  Sex: Female

DRUGS (9)
  1. LISINOPRIL+HYDROCHLOROTHIAZIDE [Suspect]
  2. CARVEDILOL [Suspect]
     Dosage: 25 MG, BID
  3. ASPIRIN [Concomitant]
     Dosage: 325 MG DAILY
  4. PRAVASTATIN [Concomitant]
     Dosage: 20 MG DAILY
  5. BUPROPION [Concomitant]
     Dosage: 150 MG, BID
  6. MIDAZOLAM [Concomitant]
     Dosage: 2 MG, UNK
     Route: 042
  7. FENTANYL [Concomitant]
     Indication: ANAESTHESIA
  8. PROPOFOL [Concomitant]
     Indication: ANAESTHESIA
  9. ROCURONIUM [Concomitant]
     Indication: ANAESTHESIA

REACTIONS (4)
  - Cardiac arrest [Recovered/Resolved]
  - Bradycardia [Unknown]
  - Atrioventricular block [Recovered/Resolved]
  - Hypotension [Recovered/Resolved]
